FAERS Safety Report 13405885 (Version 2)
Quarter: 2017Q2

REPORT INFORMATION
  Report Type: Spontaneous
  Country: ES (occurrence: ES)
  Receive Date: 20170405
  Receipt Date: 20170407
  Transmission Date: 20170830
  Serious: Yes (Other)
  Sender: FDA-Public Use
  Company Number: ES-DSJP-DSE-2017-110595

PATIENT

DRUGS (1)
  1. BALZAK [Suspect]
     Active Substance: AMLODIPINE BESYLATE\OLMESARTAN MEDOXOMIL
     Indication: HYPERTENSION
     Route: 048
     Dates: start: 201508, end: 201702

REACTIONS (1)
  - Intestinal mucosal atrophy [Unknown]

NARRATIVE: CASE EVENT DATE: 2017
